FAERS Safety Report 14599035 (Version 3)
Quarter: 2018Q3

REPORT INFORMATION
  Report Type: Spontaneous
  Country: DE (occurrence: DE)
  Receive Date: 20180305
  Receipt Date: 20180706
  Transmission Date: 20181010
  Serious: Yes (Other)
  Sender: FDA-Public Use
  Company Number: DE-CONCORDIA PHARMACEUTICALS INC.-GSH201710-006027

PATIENT
  Age: 67 Year
  Sex: Male

DRUGS (20)
  1. DOXORUBICIN [Suspect]
     Active Substance: DOXORUBICIN
     Indication: MANTLE CELL LYMPHOMA
     Dosage: R?CHOP
  2. EPLERENONE. [Concomitant]
     Active Substance: EPLERENONE
     Indication: PRODUCT USED FOR UNKNOWN INDICATION
  3. RITUXIMAB. [Suspect]
     Active Substance: RITUXIMAB
     Indication: MANTLE CELL LYMPHOMA
     Dosage: R?CHOP
  4. RITUXIMAB. [Suspect]
     Active Substance: RITUXIMAB
     Dosage: R?DHAP
  5. CISPLATIN. [Suspect]
     Active Substance: CISPLATIN
     Indication: MANTLE CELL LYMPHOMA
     Dosage: R?DHAP
  6. OXALIPLATIN. [Suspect]
     Active Substance: OXALIPLATIN
     Indication: MANTLE CELL LYMPHOMA
     Dosage: R?DHAOX
  7. VINCRISTINE [Suspect]
     Active Substance: VINCRISTINE
     Indication: MANTLE CELL LYMPHOMA
     Dosage: R?CHOP
  8. R?BENDAMUSTIN [Suspect]
     Active Substance: BENDAMUSTINE
     Indication: MANTLE CELL LYMPHOMA
  9. PREDNISOLONE. [Suspect]
     Active Substance: PREDNISOLONE
     Indication: MANTLE CELL LYMPHOMA
     Dosage: R?CHOP
  10. DEXAMETHASONE. [Suspect]
     Active Substance: DEXAMETHASONE
     Dosage: R?DHAOX
  11. RITUXIMAB. [Suspect]
     Active Substance: RITUXIMAB
     Dosage: R?BENDAMUSTIN
  12. CYCLOPHOSPHAMIDE. [Suspect]
     Active Substance: CYCLOPHOSPHAMIDE
     Indication: MANTLE CELL LYMPHOMA
     Dosage: R?CHOP
  13. AMIODARONE [Suspect]
     Active Substance: AMIODARONE
     Indication: MANTLE CELL LYMPHOMA
     Dosage: 200 MG, ONCE DAILY
     Dates: start: 20090101
  14. RITUXIMAB. [Suspect]
     Active Substance: RITUXIMAB
     Dosage: R?DHAOX
  15. HYDROCHLOROTHIAZIDE. [Concomitant]
     Active Substance: HYDROCHLOROTHIAZIDE
     Indication: PRODUCT USED FOR UNKNOWN INDICATION
  16. CYTARABINE. [Suspect]
     Active Substance: CYTARABINE
     Dosage: HIGH DOSE  (R?DHAOX)
  17. AMIODARONE [Suspect]
     Active Substance: AMIODARONE
     Indication: ATRIAL FIBRILLATION
  18. DEXAMETHASONE. [Suspect]
     Active Substance: DEXAMETHASONE
     Indication: MANTLE CELL LYMPHOMA
     Dosage: R?DHAP
  19. CYTARABINE. [Suspect]
     Active Substance: CYTARABINE
     Indication: MANTLE CELL LYMPHOMA
     Dosage: HIGH DOSE (R?DHAP)
  20. IBRUTINIB [Suspect]
     Active Substance: IBRUTINIB
     Indication: MANTLE CELL LYMPHOMA
     Dosage: 560 MG, ONCE DAILY
     Route: 065

REACTIONS (4)
  - Cardiac failure [Recovered/Resolved]
  - Tachyarrhythmia [Recovered/Resolved]
  - Drug interaction [Unknown]
  - Drug effect incomplete [Unknown]
